FAERS Safety Report 18414576 (Version 2)
Quarter: 2021Q3

REPORT INFORMATION
  Report Type: Spontaneous
  Country: US (occurrence: US)
  Receive Date: 20201022
  Receipt Date: 20210720
  Transmission Date: 20211014
  Serious: Yes (Hospitalization, Other)
  Sender: FDA-Public Use
  Company Number: US-PFIZER INC-2020405112

PATIENT
  Age: 80 Year
  Sex: Female
  Weight: 63.5 kg

DRUGS (2)
  1. CELEBREX [Suspect]
     Active Substance: CELECOXIB
     Indication: PAIN
  2. CELEBREX [Suspect]
     Active Substance: CELECOXIB
     Indication: JOINT INJURY
     Dosage: 200 MG
     Dates: start: 2018, end: 202004

REACTIONS (6)
  - Myocardial infarction [Unknown]
  - Fall [Recovered/Resolved with Sequelae]
  - Haemorrhage [Unknown]
  - Cerebrovascular accident [Unknown]
  - Hip fracture [Recovered/Resolved]
  - Head injury [Unknown]

NARRATIVE: CASE EVENT DATE: 20191226
